FAERS Safety Report 11884526 (Version 5)
Quarter: 2016Q3

REPORT INFORMATION
  Report Type: Spontaneous
  Country: US (occurrence: US)
  Receive Date: 20160104
  Receipt Date: 20160812
  Transmission Date: 20161109
  Serious: Yes (Other)
  Sender: FDA-Public Use
  Company Number: US-AMGEN-USASP2015138499

PATIENT
  Age: 73 Year
  Sex: Female

DRUGS (1)
  1. ENBREL [Suspect]
     Active Substance: ETANERCEPT
     Indication: RHEUMATOID ARTHRITIS
     Dosage: 50 MG, QWK
     Route: 065

REACTIONS (7)
  - Abasia [Recovering/Resolving]
  - Rheumatoid arthritis [Unknown]
  - Activities of daily living impaired [Recovering/Resolving]
  - Injection site pain [Unknown]
  - Drug effect decreased [Unknown]
  - Pain [Unknown]
  - Needle issue [Unknown]
